FAERS Safety Report 15114308 (Version 2)
Quarter: 2018Q3

REPORT INFORMATION
  Report Type: Report from Study
  Country: CO (occurrence: CO)
  Receive Date: 20180706
  Receipt Date: 20180801
  Transmission Date: 20181010
  Serious: Yes (Other)
  Sender: FDA-Public Use
  Company Number: CO-SA-2017SA245060

PATIENT
  Age: 33 Year
  Sex: Male

DRUGS (1)
  1. ALEMTUZUMAB [Suspect]
     Active Substance: ALEMTUZUMAB
     Indication: MULTIPLE SCLEROSIS
     Dosage: UNK UNK,QD
     Route: 041
     Dates: start: 20171030, end: 20171102

REACTIONS (9)
  - Urinary tract infection bacterial [Not Recovered/Not Resolved]
  - Bacteriuria [Not Recovered/Not Resolved]
  - Urobilinogen urine increased [Not Recovered/Not Resolved]
  - Blood creatinine decreased [Not Recovered/Not Resolved]
  - Haematuria [Recovered/Resolved]
  - Lymphocyte count decreased [Recovered/Resolved]
  - White blood cell count decreased [Recovered/Resolved]
  - Nitrite urine present [Not Recovered/Not Resolved]
  - Red blood cells urine positive [Not Recovered/Not Resolved]

NARRATIVE: CASE EVENT DATE: 20171129
